FAERS Safety Report 21322471 (Version 1)
Quarter: 2022Q3

REPORT INFORMATION
  Report Type: Spontaneous
  Country: US (occurrence: US)
  Receive Date: 20220912
  Receipt Date: 20220912
  Transmission Date: 20221027
  Serious: Yes (Hospitalization)
  Sender: FDA-Public Use
  Company Number: US-ORGANON-O2209USA000492

PATIENT
  Age: 65 Year
  Sex: Female

DRUGS (5)
  1. COZAAR [Suspect]
     Active Substance: LOSARTAN POTASSIUM
     Indication: Hypertensive urgency
     Dosage: MAXIMALLY TOLERATED DOSE
     Route: 048
  2. CARVEDILOL [Suspect]
     Active Substance: CARVEDILOL
     Indication: Hypertensive urgency
     Dosage: MAXIMALLY TOLERATED DOSE
     Route: 048
  3. HYDRALAZINE [Suspect]
     Active Substance: HYDRALAZINE HYDROCHLORIDE
     Indication: Hypertensive urgency
     Dosage: MAXIMALLY TOLERATED DOSE
     Route: 048
  4. NIFEDIPINE [Suspect]
     Active Substance: NIFEDIPINE
     Indication: Hypertensive urgency
     Dosage: MAXIMALLY TOLERATED DOSE
     Route: 048
  5. ROSUVASTATIN [Concomitant]
     Active Substance: ROSUVASTATIN
     Dosage: 5 MG DAILY

REACTIONS (1)
  - Therapeutic product effect incomplete [Unknown]
